FAERS Safety Report 15739399 (Version 1)
Quarter: 2018Q4

REPORT INFORMATION
  Report Type: Spontaneous
  Country: US (occurrence: US)
  Receive Date: 20181219
  Receipt Date: 20181219
  Transmission Date: 20190205
  Serious: No
  Sender: FDA-Public Use
  Company Number: US-PFIZER INC-2018516489

PATIENT
  Age: 44 Year
  Sex: Female

DRUGS (4)
  1. LYRICA [Suspect]
     Active Substance: PREGABALIN
     Indication: DIABETIC NEUROPATHY
     Dosage: 300 MG, 2X/DAY, (2 IN THE MORNING AND 2 AT NIGHT)
     Route: 048
  2. LEVEMIR [Concomitant]
     Active Substance: INSULIN DETEMIR
     Indication: DIABETES MELLITUS
     Dosage: 55 IU, 1X/DAY (55 UNITS ONCE A DAY INJECTION )
  3. TRAMADOL. [Concomitant]
     Active Substance: TRAMADOL
     Indication: ARTHRITIS
     Dosage: 1 DF, 2X/DAY, (TWICE A DAY,ONE IN MORNING AND ONE NIGHT PIL)
  4. METFORMIN [Concomitant]
     Active Substance: METFORMIN HYDROCHLORIDE
     Indication: DIABETES MELLITUS
     Dosage: 1000 MG, 2X/DAY (1000 MG IN MORNING AND AT NIGHT )

REACTIONS (4)
  - Weight fluctuation [Unknown]
  - Memory impairment [Unknown]
  - Vision blurred [Unknown]
  - Cholelithiasis [Unknown]
